FAERS Safety Report 9476637 (Version 2)
Quarter: 2013Q3

REPORT INFORMATION
  Report Type: Spontaneous
  Country: NO (occurrence: NO)
  Receive Date: 20130826
  Receipt Date: 20130826
  Transmission Date: 20140515
  Serious: Yes (Other)
  Sender: FDA-Public Use
  Company Number: GXKR2010NO08879

PATIENT
  Age: 35 Year
  Sex: Female

DRUGS (5)
  1. CANDESARTAN CILEXETIL [Suspect]
     Indication: MIGRAINE PROPHYLAXIS
     Dosage: 16 MG/DAY
     Route: 065
  2. PRAMIPEXOLE [Suspect]
     Indication: MIGRAINE PROPHYLAXIS
     Dosage: 0.18 MG, TID
  3. AMITRIPTYLINE [Suspect]
     Indication: MIGRAINE PROPHYLAXIS
     Dosage: 25 MG, PER DAY
  4. ZOLMITRIPTAN [Suspect]
  5. METOCLOPRAMIDE [Suspect]

REACTIONS (3)
  - Abortion missed [Unknown]
  - Oligohydramnios [Unknown]
  - Exposure during pregnancy [Unknown]
